FAERS Safety Report 14604136 (Version 2)
Quarter: 2018Q2

REPORT INFORMATION
  Report Type: Spontaneous
  Country: US (occurrence: US)
  Receive Date: 20180306
  Receipt Date: 20180404
  Transmission Date: 20180711
  Serious: Yes (Hospitalization)
  Sender: FDA-Public Use
  Company Number: US-ASTRAZENECA-2018SE25527

PATIENT
  Age: 26392 Day
  Sex: Female
  Weight: 65.8 kg

DRUGS (1)
  1. TUDORZA PRESSAIR [Suspect]
     Active Substance: ACLIDINIUM BROMIDE
     Indication: CHRONIC OBSTRUCTIVE PULMONARY DISEASE
     Route: 055

REACTIONS (4)
  - Device related infection [Unknown]
  - Intentional device misuse [Unknown]
  - Device defective [Unknown]
  - Lower limb fracture [Unknown]

NARRATIVE: CASE EVENT DATE: 20170721
